FAERS Safety Report 12628175 (Version 2)
Quarter: 2016Q3

REPORT INFORMATION
  Report Type: Report from Study
  Country: KR (occurrence: KR)
  Receive Date: 20160808
  Receipt Date: 20160830
  Transmission Date: 20161109
  Serious: Yes (Other)
  Sender: FDA-Public Use
  Company Number: KR-ROCHE-1729236

PATIENT
  Age: 58 Year
  Sex: Female

DRUGS (2)
  1. HERCEPTIN [Suspect]
     Active Substance: TRASTUZUMAB
     Indication: BREAST CANCER
     Route: 058
  2. PERJETA [Suspect]
     Active Substance: PERTUZUMAB
     Indication: BREAST CANCER
     Route: 065

REACTIONS (7)
  - Oral pain [Unknown]
  - Feeding disorder [Unknown]
  - Face oedema [Unknown]
  - Dyspnoea [Unknown]
  - Pulmonary oedema [Unknown]
  - Leukopenia [Unknown]
  - Drug administered at inappropriate site [Unknown]
